FAERS Safety Report 10690289 (Version 1)
Quarter: 2015Q1

REPORT INFORMATION
  Report Type: Spontaneous
  Country: US (occurrence: None)
  Receive Date: 20150102
  Receipt Date: 20150102
  Transmission Date: 20150720
  Serious: Yes (Other)
  Sender: FDA-Public Use
  Company Number: None

PATIENT
  Age: 35 Year
  Sex: Female
  Weight: 66.68 kg

DRUGS (1)
  1. BACTRIM [Suspect]
     Active Substance: SULFAMETHOXAZOLE\TRIMETHOPRIM
     Indication: INFECTION
     Dates: start: 20141224

REACTIONS (6)
  - Blood test abnormal [None]
  - Hepatic function abnormal [None]
  - Visual impairment [None]
  - Headache [None]
  - Vaginal haemorrhage [None]
  - Abdominal pain [None]

NARRATIVE: CASE EVENT DATE: 20141224
